FAERS Safety Report 5668169-9 (Version None)
Quarter: 2008Q1

REPORT INFORMATION
  Report Type: 
  Country: None (occurrence: None)
  Receive Date: 20080315
  Receipt Date: 20080215
  Transmission Date: 20080703
  Serious: No
  Sender: FDA-Public Use
  Company Number: US-ABBOTT-08P-163-0438671-00

PATIENT
  Sex: Female
  Weight: 63.56 kg

DRUGS (4)
  1. HUMIRA [Suspect]
     Indication: RHEUMATOID ARTHRITIS
     Route: 058
     Dates: start: 20071219
  2. PREDNISONE ACETATE [Concomitant]
     Indication: ARTHRALGIA
     Route: 048
     Dates: start: 20030101
  3. METHOTREXATE [Concomitant]
     Indication: ARTHRITIS
     Dates: start: 20070101
  4. ALENDRONATE SODIUM [Concomitant]
     Indication: OSTEOPOROSIS
     Dates: start: 20070101

REACTIONS (1)
  - ACCIDENTAL OVERDOSE [None]
